FAERS Safety Report 9397672 (Version 3)
Quarter: 2013Q3

REPORT INFORMATION
  Report Type: Report from Study
  Country: US (occurrence: US)
  Receive Date: 20130712
  Receipt Date: 20130805
  Transmission Date: 20140515
  Serious: Yes (Hospitalization)
  Sender: FDA-Public Use
  Company Number: US-AMGEN-USACT2012084520

PATIENT
  Age: 66 Year
  Sex: Female
  Weight: 94.8 kg

DRUGS (15)
  1. PANITUMUMAB [Suspect]
     Indication: NON-SMALL CELL LUNG CANCER
     Dosage: UNK
     Route: 065
  2. TAXOL [Concomitant]
     Dosage: 107 MG, QWK
     Dates: start: 20130618
  3. CARBOPLATIN [Concomitant]
     Dosage: 185 MG, QWK
     Dates: start: 20130618
  4. ADVAIR [Concomitant]
  5. ALBUTEROL [Concomitant]
  6. AMLODIPINE [Concomitant]
  7. ASPIRIN [Concomitant]
  8. BENAZEPRIL [Concomitant]
  9. LASIX [Concomitant]
  10. OMEPRAZOLE [Concomitant]
  11. SERTRALINE [Concomitant]
  12. SIMVASTATIN [Concomitant]
  13. SPIRIVA [Concomitant]
  14. TRAVATAN [Concomitant]
     Route: 047
  15. ZOLPIDEM [Concomitant]

REACTIONS (3)
  - Embolism [Recovering/Resolving]
  - Lymphocyte count decreased [Recovering/Resolving]
  - Anaemia [Recovering/Resolving]
